FAERS Safety Report 9221022 (Version 3)
Quarter: 2013Q2

REPORT INFORMATION
  Report Type: Report from Study
  Country: JP (occurrence: JP)
  Receive Date: 20130409
  Receipt Date: 20130524
  Transmission Date: 20140414
  Serious: Yes (Hospitalization, Other)
  Sender: FDA-Public Use
  Company Number: JP-009507513-2008SP025455

PATIENT
  Age: 0 Year
  Sex: Male
  Weight: 10 kg

DRUGS (9)
  1. DIAZOXIDE CAPSULES 25 MG ^MSD^ [Suspect]
     Indication: HYPOGLYCAEMIA
     Dosage: 25 MG, TID
     Route: 048
     Dates: start: 20081130, end: 20081205
  2. DIAZOXIDE CAPSULES 25 MG ^MSD^ [Suspect]
     Dosage: 41.6 MG, TID
     Route: 048
     Dates: start: 20081206, end: 20081209
  3. DIAZOXIDE CAPSULES 25 MG ^MSD^ [Suspect]
     Dosage: 41.6 MG, TID
     Route: 048
     Dates: start: 20081216, end: 20081217
  4. DIAZOXIDE CAPSULES 25 MG ^MSD^ [Suspect]
     Dosage: 25 MG, BID
     Route: 048
     Dates: start: 20120220, end: 20120222
  5. DIAZOXIDE CAPSULES 25 MG ^MSD^ [Suspect]
     Dosage: 25 MG, TID
     Route: 048
     Dates: start: 20120223, end: 20120226
  6. DIAZOXIDE CAPSULES 25 MG ^MSD^ [Suspect]
     Dosage: 50 MG, TID
     Route: 048
     Dates: start: 20120227, end: 20130228
  7. INCREMIN [Concomitant]
     Route: 048
  8. SOLDEM 3A [Concomitant]
     Route: 041
  9. HEPARIN SODIUM [Concomitant]
     Route: 042

REACTIONS (3)
  - Platelet count decreased [Recovered/Resolved]
  - Purpura [Recovered/Resolved]
  - Platelet count decreased [Recovered/Resolved]
